FAERS Safety Report 6015394-3 (Version None)
Quarter: 2008Q4

REPORT INFORMATION
  Report Type: 
  Country: None (occurrence: None)
  Receive Date: 20081218
  Receipt Date: 20081210
  Transmission Date: 20090506
  Serious: Yes (Hospitalization)
  Sender: FDA-Public Use
  Company Number: 2008SP020843

PATIENT
  Age: 35 Year
  Sex: Male
  Weight: 79 kg

DRUGS (1)
  1. PEG-INTRON [Suspect]
     Indication: HEPATITIS B
     Dosage: 100 MCG QW SC
     Route: 058
     Dates: start: 20080225, end: 20081007

REACTIONS (2)
  - CONDITION AGGRAVATED [None]
  - HEPATITIS B [None]
